FAERS Safety Report 5728738-4 (Version None)
Quarter: 2008Q2

REPORT INFORMATION
  Report Type: 
  Country: None (occurrence: None)
  Receive Date: 20080430
  Receipt Date: 20080415
  Transmission Date: 20081010
  Serious: Yes (Death)
  Sender: FDA-Public Use
  Company Number: 2008EU000718

PATIENT
  Age: 58 Year
  Sex: Male

DRUGS (22)
  1. PROGRAF [Suspect]
     Indication: PROPHYLAXIS AGAINST GRAFT VERSUS HOST DISEASE
     Dosage: 1 MG, BID,
     Dates: start: 20040101
  2. CAMPATH [Suspect]
     Indication: CHRONIC LYMPHOCYTIC LEUKAEMIA
     Dosage: 5 MG, UID/QD,; 10 MG, UID/QD,; 20 MG, UID/QD,; 30 MG, UID/QD,
     Dates: start: 20040101
  3. CAMPATH [Suspect]
     Indication: CHRONIC LYMPHOCYTIC LEUKAEMIA
     Dosage: 5 MG, UID/QD,; 10 MG, UID/QD,; 20 MG, UID/QD,; 30 MG, UID/QD,
     Dates: start: 20040101
  4. CAMPATH [Suspect]
     Indication: CHRONIC LYMPHOCYTIC LEUKAEMIA
     Dosage: 5 MG, UID/QD,; 10 MG, UID/QD,; 20 MG, UID/QD,; 30 MG, UID/QD,
     Dates: start: 20040101
  5. CAMPATH [Suspect]
     Indication: CHRONIC LYMPHOCYTIC LEUKAEMIA
     Dosage: 5 MG, UID/QD,; 10 MG, UID/QD,; 20 MG, UID/QD,; 30 MG, UID/QD,
     Dates: start: 20040101
  6. FLUDARABINE PHOSPHATE [Suspect]
     Dosage: 30 MG/M2, UID/QD,
     Dates: start: 20040101
  7. BUSULFAN(BUSULFAN) [Suspect]
     Dosage: 1 MG/KG, QID,
     Dates: start: 20040101
  8. CYCLOSPORINE [Suspect]
     Indication: PROPHYLAXIS AGAINST GRAFT VERSUS HOST DISEASE
     Dosage: 150 MG, BID,; 175 MG, BID,; 200 MG, BID,; 200 MG, UID/QD,; 200 MG, BID,; 150 MG, BID,
     Dates: start: 20040101
  9. CYCLOSPORINE [Suspect]
     Indication: PROPHYLAXIS AGAINST GRAFT VERSUS HOST DISEASE
     Dosage: 150 MG, BID,; 175 MG, BID,; 200 MG, BID,; 200 MG, UID/QD,; 200 MG, BID,; 150 MG, BID,
     Dates: start: 20040101
  10. CYCLOSPORINE [Suspect]
     Indication: PROPHYLAXIS AGAINST GRAFT VERSUS HOST DISEASE
     Dosage: 150 MG, BID,; 175 MG, BID,; 200 MG, BID,; 200 MG, UID/QD,; 200 MG, BID,; 150 MG, BID,
     Dates: start: 20040101
  11. CYCLOSPORINE [Suspect]
     Indication: PROPHYLAXIS AGAINST GRAFT VERSUS HOST DISEASE
     Dosage: 150 MG, BID,; 175 MG, BID,; 200 MG, BID,; 200 MG, UID/QD,; 200 MG, BID,; 150 MG, BID,
     Dates: start: 20040101
  12. CYCLOSPORINE [Suspect]
     Indication: PROPHYLAXIS AGAINST GRAFT VERSUS HOST DISEASE
     Dosage: 150 MG, BID,; 175 MG, BID,; 200 MG, BID,; 200 MG, UID/QD,; 200 MG, BID,; 150 MG, BID,
     Dates: start: 20040101
  13. CYCLOSPORINE [Suspect]
     Indication: PROPHYLAXIS AGAINST GRAFT VERSUS HOST DISEASE
     Dosage: 150 MG, BID,; 175 MG, BID,; 200 MG, BID,; 200 MG, UID/QD,; 200 MG, BID,; 150 MG, BID,
     Dates: start: 20040101
  14. PREDNISOLONE [Suspect]
     Indication: ACUTE GRAFT VERSUS HOST DISEASE IN SKIN
     Dosage: 50 MG, UID/QD,; 80 MG, UID/QD,; 80 MG, UID/QD,; 80 MG, UID/QD,
     Dates: start: 20040101
  15. PREDNISOLONE [Suspect]
     Indication: ACUTE GRAFT VERSUS HOST DISEASE IN SKIN
     Dosage: 50 MG, UID/QD,; 80 MG, UID/QD,; 80 MG, UID/QD,; 80 MG, UID/QD,
     Dates: start: 20040101
  16. PREDNISOLONE [Suspect]
     Indication: ACUTE GRAFT VERSUS HOST DISEASE IN SKIN
     Dosage: 50 MG, UID/QD,; 80 MG, UID/QD,; 80 MG, UID/QD,; 80 MG, UID/QD,
     Dates: start: 20040101
  17. PREDNISOLONE [Suspect]
     Indication: ACUTE GRAFT VERSUS HOST DISEASE IN SKIN
     Dosage: 50 MG, UID/QD,; 80 MG, UID/QD,; 80 MG, UID/QD,; 80 MG, UID/QD,
     Dates: start: 20040101
  18. CIDOFOVIR (CIDOFOVIR) [Concomitant]
  19. VALGANCICLOVIR HCL [Concomitant]
  20. PROBENECID [Concomitant]
  21. CHLORPROMAZINE [Concomitant]
  22. IMMUNOGLOBULINS (IMMUNOGLOBULINS) [Concomitant]

REACTIONS (4)
  - ACUTE GRAFT VERSUS HOST DISEASE IN SKIN [None]
  - CYTOMEGALOVIRUS INFECTION [None]
  - JC VIRUS INFECTION [None]
  - PROGRESSIVE MULTIFOCAL LEUKOENCEPHALOPATHY [None]
